FAERS Safety Report 16409859 (Version 1)
Quarter: 2019Q2

REPORT INFORMATION
  Report Type: Report from Study
  Country: CA (occurrence: CA)
  Receive Date: 20190610
  Receipt Date: 20190610
  Transmission Date: 20190711
  Serious: Yes (Other)
  Sender: FDA-Public Use
  Company Number: CA-JNJFOC-20190605770

PATIENT
  Age: 16 Year
  Sex: Male
  Weight: 64 kg

DRUGS (4)
  1. MCAL [Concomitant]
     Route: 048
  2. REMICADE [Suspect]
     Active Substance: INFLIXIMAB
     Indication: COLITIS ULCERATIVE
     Dosage: STRENGTH = 100 MG
     Route: 042
     Dates: start: 20180531
  3. METHOTREXATE. [Concomitant]
     Active Substance: METHOTREXATE
     Route: 048
  4. ACIDE FOLIQUE [Concomitant]
     Active Substance: FOLIC ACID
     Route: 048

REACTIONS (2)
  - Haematochezia [Recovered/Resolved]
  - Frequent bowel movements [Recovered/Resolved]

NARRATIVE: CASE EVENT DATE: 201905
